FAERS Safety Report 20744037 (Version 1)
Quarter: 2022Q2

REPORT INFORMATION
  Report Type: Spontaneous
  Country: US (occurrence: US)
  Receive Date: 20220425
  Receipt Date: 20220425
  Transmission Date: 20220720
  Serious: No
  Sender: FDA-Public Use
  Company Number: US-Accord-222461

PATIENT
  Sex: Male
  Weight: 66.68 kg

DRUGS (1)
  1. TEMOZOLOMIDE [Suspect]
     Active Substance: TEMOZOLOMIDE
     Indication: Pancreatic carcinoma
     Dosage: 10 PILLS /MONTH, TAKE 2 DAY A DAY FOR 5 DAYS, THEN WAIT 28 DAYS, FOR 8-9 MONTHS

REACTIONS (4)
  - Hypoaesthesia [Not Recovered/Not Resolved]
  - Laziness [Not Recovered/Not Resolved]
  - Muscular weakness [Not Recovered/Not Resolved]
  - Off label use [Unknown]
